FAERS Safety Report 7197181-6 (Version None)
Quarter: 2010Q4

REPORT INFORMATION
  Report Type: 
  Country: None (occurrence: None)
  Receive Date: 20101224
  Receipt Date: 20101213
  Transmission Date: 20110411
  Serious: Yes (Hospitalization, Other)
  Sender: FDA-Public Use
  Company Number: PHHY2010US21325

PATIENT
  Sex: Female
  Weight: 75 kg

DRUGS (4)
  1. EXJADE [Suspect]
     Indication: SERUM FERRITIN INCREASED
     Dosage: 1500 MG, QD
     Route: 048
     Dates: start: 20091228, end: 20100405
  2. EXJADE [Suspect]
     Dosage: 1500 MG, DAILY
     Route: 048
     Dates: start: 20091201
  3. EXJADE [Suspect]
     Dosage: 750 MG, UNK
     Route: 048
     Dates: end: 20101001
  4. RED BLOOD CELLS [Concomitant]
     Dosage: UNK

REACTIONS (12)
  - ABDOMINAL PAIN [None]
  - APPENDICECTOMY [None]
  - AZOTAEMIA [None]
  - BACK PAIN [None]
  - BLOOD CREATININE INCREASED [None]
  - DIVERTICULUM [None]
  - DIZZINESS [None]
  - FATIGUE [None]
  - LIVER DISORDER [None]
  - LIVER FUNCTION TEST ABNORMAL [None]
  - MUSCULOSKELETAL PAIN [None]
  - UMBILICAL HERNIA REPAIR [None]
